FAERS Safety Report 21805861 (Version 1)
Quarter: 2023Q1

REPORT INFORMATION
  Report Type: Spontaneous
  Country: FR (occurrence: FR)
  Receive Date: 20230102
  Receipt Date: 20230102
  Transmission Date: 20230417
  Serious: Yes (Hospitalization)
  Sender: FDA-Public Use
  Company Number: None

PATIENT
  Age: 64 Year
  Sex: Male
  Weight: 70 kg

DRUGS (4)
  1. VERAPAMIL HYDROCHLORIDE [Suspect]
     Active Substance: VERAPAMIL HYDROCHLORIDE
     Indication: Intentional overdose
     Dosage: 21 X 40 MG
     Route: 065
     Dates: start: 20221025, end: 20221025
  2. QUETIAPINE [Suspect]
     Active Substance: QUETIAPINE
     Indication: Intentional overdose
     Dosage: 7 X 400 MG
     Route: 065
     Dates: start: 20221025, end: 20221025
  3. DEPAKOTE [Suspect]
     Active Substance: DIVALPROEX SODIUM
     Indication: Intentional overdose
     Route: 065
     Dates: start: 20221025, end: 20221025
  4. LAMICTAL [Suspect]
     Active Substance: LAMOTRIGINE
     Indication: Intentional overdose
     Route: 065
     Dates: start: 20221025, end: 20221025

REACTIONS (6)
  - Poisoning deliberate [Recovered/Resolved]
  - Hypotension [Recovered/Resolved]
  - Vomiting [Recovered/Resolved]
  - Haemodynamic instability [Recovered/Resolved]
  - Pancreatitis [Recovering/Resolving]
  - Coma [Recovered/Resolved]

NARRATIVE: CASE EVENT DATE: 20221025
